FAERS Safety Report 9009441 (Version 1)
Quarter: 2013Q1

REPORT INFORMATION
  Report Type: Spontaneous
  Country: US (occurrence: US)
  Receive Date: 20130112
  Receipt Date: 20130112
  Transmission Date: 20140127
  Serious: Yes (Life-Threatening)
  Sender: FDA-Public Use
  Company Number: US-009507513-1301USA001852

PATIENT
  Age: 36 Year
  Sex: Male

DRUGS (5)
  1. SINGULAIR [Suspect]
     Dosage: 10 MG DAILY IH RESPIRATORY (INHALATION)
  2. VENTOLIN (ALBUTEROL SULFATE) [Concomitant]
     Indication: ASTHMA
  3. SERETIDE [Suspect]
     Dosage: 10 MG DAILY IH RESPIRATORY (INHALATION)
  4. SYMBICORT TURBUHALER [Suspect]
     Dosage: 160/4.5 UG PRN
  5. SYMBICORT TURBUHALER [Suspect]
     Dosage: 160/4.5 UG BID

REACTIONS (1)
  - Asthma [Unknown]
